FAERS Safety Report 5730274-6 (Version None)
Quarter: 2008Q2

REPORT INFORMATION
  Report Type: 
  Country: None (occurrence: None)
  Receive Date: 20080505
  Receipt Date: 20080505
  Transmission Date: 20081010
  Serious: No
  Sender: FDA-Public Use
  Company Number: None

PATIENT
  Age: 56 Year
  Sex: Male
  Weight: 81.6475 kg

DRUGS (1)
  1. ZICAM COLD REMEDY ZICAM [Suspect]
     Indication: NASOPHARYNGITIS
     Dosage: MEDICATED SWABS EVERY 4 HOURS NASAL
     Route: 045
     Dates: start: 20080421, end: 20080421

REACTIONS (3)
  - ASPHYXIA [None]
  - FEELING ABNORMAL [None]
  - PAROSMIA [None]
